FAERS Safety Report 25307421 (Version 2)
Quarter: 2025Q2

REPORT INFORMATION
  Report Type: Spontaneous
  Country: ES (occurrence: ES)
  Receive Date: 20250513
  Receipt Date: 20250522
  Transmission Date: 20250717
  Serious: Yes (Hospitalization)
  Sender: ABBVIE
  Company Number: ES-STADA-01387003

PATIENT
  Age: 58 Year
  Sex: Female

DRUGS (13)
  1. BOTULINUM TOXIN NOS [Suspect]
     Active Substance: BOTULINUM TOXIN NOS
     Indication: Trigeminal neuralgia
     Route: 065
  2. TAPENTADOL [Suspect]
     Active Substance: TAPENTADOL
     Indication: Trigeminal neuralgia
     Route: 065
     Dates: start: 2014
  3. LIDOCAINE [Concomitant]
     Active Substance: LIDOCAINE
     Indication: Nerve block
  4. PREGABALIN [Concomitant]
     Active Substance: PREGABALIN
     Indication: Paroxysmal extreme pain disorder
     Route: 065
  5. FENTANYL CITRATE [Concomitant]
     Active Substance: FENTANYL CITRATE
     Indication: Paroxysmal extreme pain disorder
  6. FENTANYL CITRATE [Concomitant]
     Active Substance: FENTANYL CITRATE
     Indication: Paroxysmal extreme pain disorder
     Route: 048
  7. GABAPENTIN [Concomitant]
     Active Substance: GABAPENTIN
     Indication: Paroxysmal extreme pain disorder
     Route: 065
  8. OXCARBAZEPINE [Concomitant]
     Active Substance: OXCARBAZEPINE
     Indication: Trigeminal neuralgia
     Route: 065
     Dates: start: 2012
  9. LIDOCAINE [Concomitant]
     Active Substance: LIDOCAINE
     Indication: Paroxysmal extreme pain disorder
     Route: 065
  10. DESVENLAFAXINE [Concomitant]
     Active Substance: DESVENLAFAXINE
     Indication: Trigeminal neuralgia
     Route: 065
     Dates: start: 2017
  11. CARBAMAZEPINE [Concomitant]
     Active Substance: CARBAMAZEPINE
     Indication: Paroxysmal extreme pain disorder
     Route: 065
  12. CLONAZEPAM [Concomitant]
     Active Substance: CLONAZEPAM
     Indication: Trigeminal neuralgia
     Route: 065
     Dates: start: 2015
  13. LACOSAMIDE [Concomitant]
     Active Substance: LACOSAMIDE
     Indication: Trigeminal neuralgia
     Route: 065
     Dates: start: 2015

REACTIONS (2)
  - Drug intolerance [Unknown]
  - Drug ineffective [Unknown]
